FAERS Safety Report 18817729 (Version 2)
Quarter: 2021Q3

REPORT INFORMATION
  Report Type: Report from Study
  Country: PA (occurrence: PA)
  Receive Date: 20210201
  Receipt Date: 20210803
  Transmission Date: 20211014
  Serious: Yes (Hospitalization, Other)
  Sender: FDA-Public Use
  Company Number: PHHY2019PA165074

PATIENT
  Age: 89 Year
  Sex: Female

DRUGS (10)
  1. OMEPRAZOLE. [Concomitant]
     Active Substance: OMEPRAZOLE
     Indication: PRODUCT USED FOR UNKNOWN INDICATION
     Dosage: UNK
     Route: 065
  2. HYDROXYUREA. [Concomitant]
     Active Substance: HYDROXYUREA
     Indication: PRODUCT USED FOR UNKNOWN INDICATION
     Dosage: UNK
     Route: 065
     Dates: start: 2017
  3. JAKAVI [Suspect]
     Active Substance: RUXOLITINIB
     Dosage: 30 MG, BID
     Route: 048
  4. FUROSEMIDE. [Concomitant]
     Active Substance: FUROSEMIDE
     Indication: BLOOD PRESSURE INCREASED
     Dosage: 1 DF, QD, (SINCE 4?5 YEARS)
     Route: 065
  5. LEVOTHYROXINE. [Concomitant]
     Active Substance: LEVOTHYROXINE
     Indication: THYROID DISORDER
     Dosage: UNK
     Route: 065
  6. ASPIRINE [Concomitant]
     Active Substance: ASPIRIN
     Indication: AORTIC STENOSIS
     Dosage: 1 DF, QD
     Route: 065
  7. ERYTHROPOIETIN [Concomitant]
     Active Substance: ERYTHROPOIETIN
     Indication: PRODUCT USED FOR UNKNOWN INDICATION
     Dosage: UNK
     Route: 065
     Dates: start: 2017
  8. GABAPENTIN. [Suspect]
     Active Substance: GABAPENTIN
     Indication: SPINAL COLUMN INJURY
     Dosage: 300 MG, QD, 3 YEARS AGO
     Route: 065
  9. RIVASTATIN [Concomitant]
     Indication: BLOOD CHOLESTEROL INCREASED
     Dosage: 10 MG
     Route: 065
  10. JAKAVI [Suspect]
     Active Substance: RUXOLITINIB
     Indication: PRIMARY MYELOFIBROSIS
     Dosage: 15 MG (TWO TABLETS IN THE MORNING AND NOT AT NIGHT)
     Route: 048
     Dates: start: 201704

REACTIONS (31)
  - Cataract [Unknown]
  - Spinal disorder [Unknown]
  - Haematoma [Unknown]
  - Extra dose administered [Unknown]
  - Herpes virus infection [Recovering/Resolving]
  - Vomiting [Unknown]
  - Cardiac disorder [Unknown]
  - Product prescribing issue [Unknown]
  - SARS-CoV-2 test positive [Recovered/Resolved]
  - Nervousness [Unknown]
  - Fatigue [Unknown]
  - Nausea [Recovering/Resolving]
  - Dyspnoea [Unknown]
  - Malaise [Recovering/Resolving]
  - Blindness [Unknown]
  - Gait disturbance [Unknown]
  - Contusion [Unknown]
  - Lung disorder [Unknown]
  - Diabetes mellitus [Unknown]
  - Eating disorder [Recovering/Resolving]
  - Diarrhoea [Unknown]
  - Asthenia [Recovering/Resolving]
  - Arthralgia [Unknown]
  - Dehydration [Unknown]
  - Pruritus [Unknown]
  - Pain [Unknown]
  - Retinal detachment [Unknown]
  - Haemoglobin decreased [Unknown]
  - Blood pressure abnormal [Unknown]
  - Weight increased [Unknown]
  - Inappropriate schedule of product administration [Unknown]

NARRATIVE: CASE EVENT DATE: 202007
